FAERS Safety Report 15470475 (Version 1)
Quarter: 2018Q4

REPORT INFORMATION
  Report Type: Spontaneous
  Country: US (occurrence: US)
  Receive Date: 20181005
  Receipt Date: 20181005
  Transmission Date: 20190205
  Serious: Yes (Other)
  Sender: FDA-Public Use
  Company Number: US-SA-2018SA272575

PATIENT
  Age: 70 Year
  Sex: Male

DRUGS (2)
  1. TOUJEO [Suspect]
     Active Substance: INSULIN GLARGINE
     Indication: TYPE 2 DIABETES MELLITUS
     Dosage: 20 U, QD
  2. GLIPIZIDE. [Suspect]
     Active Substance: GLIPIZIDE
     Dosage: 1 DF, QD

REACTIONS (3)
  - Atrioventricular block [Unknown]
  - Blood glucose decreased [Unknown]
  - Device operational issue [Unknown]
